FAERS Safety Report 19210376 (Version 1)
Quarter: 2021Q2

REPORT INFORMATION
  Report Type: Spontaneous
  Country: US (occurrence: US)
  Receive Date: 20210504
  Receipt Date: 20210504
  Transmission Date: 20210717
  Serious: Yes (Other)
  Sender: FDA-Public Use
  Company Number: US-ASTRAZENECA-2021A364198

PATIENT
  Age: 81 Year
  Sex: Male

DRUGS (1)
  1. BREZTRI AEROSPHERE [Suspect]
     Active Substance: BUDESONIDE\FORMOTEROL\GLYCOPYRRONIUM
     Indication: CHRONIC OBSTRUCTIVE PULMONARY DISEASE
     Dosage: TWO PUFFS TWO TIMES A DAY
     Route: 055
     Dates: start: 2021

REACTIONS (4)
  - Intentional product use issue [Unknown]
  - Device delivery system issue [Unknown]
  - Oxygen saturation decreased [Unknown]
  - Malaise [Unknown]

NARRATIVE: CASE EVENT DATE: 2021
